FAERS Safety Report 8404166-8 (Version None)
Quarter: 2012Q2

REPORT INFORMATION
  Report Type: 
  Country: None (occurrence: None)
  Receive Date: 20120601
  Receipt Date: 20120418
  Transmission Date: 20120825
  Serious: Yes (Hospitalization, Other)
  Sender: FDA-Public Use
  Company Number: CHPA2012US008994

PATIENT
  Age: 68 Year
  Sex: Female

DRUGS (2)
  1. MAALOX ANTACID QUICK DISSOLVE [Suspect]
     Indication: GASTROOESOPHAGEAL REFLUX DISEASE
     Dosage: 2-3 CHEW TABS PER DAY
     Route: 048
     Dates: start: 20110101, end: 20120405
  2. PEPCID [Concomitant]
     Indication: GASTROOESOPHAGEAL REFLUX DISEASE
     Dosage: 4 DF, QD
     Route: 048

REACTIONS (6)
  - HEART RATE INCREASED [None]
  - OFF LABEL USE [None]
  - HEART RATE IRREGULAR [None]
  - PANIC ATTACK [None]
  - PARANOIA [None]
  - HEADACHE [None]
